FAERS Safety Report 13887313 (Version 1)
Quarter: 2017Q3

REPORT INFORMATION
  Report Type: Spontaneous
  Country: US (occurrence: US)
  Receive Date: 20170821
  Receipt Date: 20170821
  Transmission Date: 20171127
  Serious: No
  Sender: FDA-Public Use
  Company Number: US-ROCHE-794863

PATIENT
  Age: 13 Year
  Sex: Male

DRUGS (1)
  1. ACTEMRA [Suspect]
     Active Substance: TOCILIZUMAB
     Indication: STILL^S DISEASE
     Route: 042

REACTIONS (4)
  - Blood pressure decreased [Recovered/Resolved]
  - Alanine aminotransferase increased [Recovering/Resolving]
  - Eosinophil count increased [Not Recovered/Not Resolved]
  - Lymphocytosis [Unknown]

NARRATIVE: CASE EVENT DATE: 20110722
